FAERS Safety Report 10904354 (Version 1)
Quarter: 2015Q1

REPORT INFORMATION
  Report Type: Spontaneous
  Country: US (occurrence: None)
  Receive Date: 20150107
  Receipt Date: 20150107
  Transmission Date: 20150721
  Serious: No
  Sender: FDA-Public Use
  Company Number: 2014TUS011159

PATIENT
  Age: 33 Year
  Sex: Female
  Weight: 98 kg

DRUGS (1)
  1. CONTRAVE [Suspect]
     Active Substance: BUPROPION HYDROCHLORIDE\NALTREXONE HYDROCHLORIDE
     Indication: WEIGHT DECREASED
     Dosage: ONE TABLET DAILY IN AM
     Route: 048
     Dates: start: 20141028, end: 20141028

REACTIONS (6)
  - Headache [None]
  - Flushing [None]
  - Blood pressure decreased [None]
  - Feeling cold [None]
  - Nausea [None]
  - Mental impairment [None]

NARRATIVE: CASE EVENT DATE: 20141028
